FAERS Safety Report 21590878 (Version 3)
Quarter: 2022Q4

REPORT INFORMATION
  Report Type: Report from Study
  Country: US (occurrence: US)
  Receive Date: 20221114
  Receipt Date: 20221227
  Transmission Date: 20230113
  Serious: Yes (Other)
  Sender: FDA-Public Use
  Company Number: US-ABBVIE-22K-163-4406099-00

PATIENT
  Sex: Female

DRUGS (4)
  1. HUMIRA [Suspect]
     Active Substance: ADALIMUMAB
     Indication: Hidradenitis
     Route: 058
     Dates: start: 20211027
  2. HUMIRA [Suspect]
     Active Substance: ADALIMUMAB
     Indication: Hidradenitis
     Dosage: DAY 1
     Route: 058
     Dates: start: 20211013, end: 20211013
  3. HUMIRA [Suspect]
     Active Substance: ADALIMUMAB
     Dosage: DAY 15 STRENGTH 80 MILLIGRAM
     Route: 058
     Dates: start: 20211027, end: 20211027
  4. HUMIRA [Suspect]
     Active Substance: ADALIMUMAB
     Dosage: STRENGTH 80 MILLIGRAM
     Route: 058
     Dates: start: 20211027, end: 20221108

REACTIONS (7)
  - Hidradenitis [Unknown]
  - Dizziness [Unknown]
  - Injection site pruritus [Unknown]
  - Blood pressure increased [Unknown]
  - Drug ineffective [Unknown]
  - Skin lesion [Unknown]
  - Pain [Unknown]
